FAERS Safety Report 22021347 (Version 1)
Quarter: 2023Q1

REPORT INFORMATION
  Report Type: Spontaneous
  Country: US (occurrence: US)
  Receive Date: 20230222
  Receipt Date: 20230222
  Transmission Date: 20230418
  Serious: Yes (Other)
  Sender: FDA-Public Use
  Company Number: US-GLAND PHARMA LIMITED-2023US000572

PATIENT
  Age: 20 Year
  Sex: Male

DRUGS (3)
  1. FLUOROURACIL [Suspect]
     Active Substance: FLUOROURACIL
     Indication: Hepatocellular carcinoma
     Dosage: 200 MG/M2, 7-DAY-ON/7-DAY-OFF
     Route: 065
  2. INTERFERON ALFA NOS [Suspect]
     Active Substance: INTERFERON ALFA-2A OR INTERFERON ALFA-2B
     Indication: Hepatocellular carcinoma
     Dosage: 4 MILLION U/M2 3 TIMES/WEEK WITH 5-FU, FOR 8 WEEKS
     Route: 065
  3. NIVOLUMAB [Suspect]
     Active Substance: NIVOLUMAB
     Indication: Hepatocellular carcinoma
     Dosage: 480 MG, Q4WEEKS
     Route: 065

REACTIONS (2)
  - Tumour haemorrhage [Unknown]
  - Off label use [Unknown]
